FAERS Safety Report 15914759 (Version 2)
Quarter: 2020Q1

REPORT INFORMATION
  Report Type: Spontaneous
  Country: US (occurrence: US)
  Receive Date: 20190204
  Receipt Date: 20200206
  Transmission Date: 20200409
  Serious: No
  Sender: FDA-Public Use
  Company Number: US-ABBVIE-18K-163-2493477-00

PATIENT

DRUGS (1)
  1. HUMIRA [Suspect]
     Active Substance: ADALIMUMAB
     Indication: PRODUCT USED FOR UNKNOWN INDICATION
     Route: 058

REACTIONS (7)
  - Autoimmune arthritis [Unknown]
  - Autoimmune thyroiditis [Unknown]
  - Adverse drug reaction [Unknown]
  - Mental disorder [Unknown]
  - Complex regional pain syndrome [Unknown]
  - Psoriasis [Recovering/Resolving]
  - Tooth abscess [Unknown]
